FAERS Safety Report 5964516-9 (Version None)
Quarter: 2008Q4

REPORT INFORMATION
  Report Type: 
  Country: None (occurrence: None)
  Receive Date: 20081125
  Receipt Date: 20081117
  Transmission Date: 20090506
  Serious: No
  Sender: FDA-Public Use
  Company Number: CA-JNJFOC-20081103030

PATIENT
  Sex: Female

DRUGS (16)
  1. DURAGESIC-100 [Suspect]
     Dosage: 1X 75 MCG/HR PLUS 2X 50 MCG/HR
     Route: 062
  2. DURAGESIC-100 [Suspect]
     Indication: PAIN
     Dosage: 2-3 50 MCG/HR PATCHES
     Route: 062
  3. CLONIDINE [Concomitant]
  4. KETOPROFEN [Concomitant]
     Indication: PAIN
  5. QUETIAPINE FUMARATE [Concomitant]
  6. TRENTAL [Concomitant]
     Indication: BEHCET'S SYNDROME
  7. RANITIDINE [Concomitant]
     Indication: GASTROOESOPHAGEAL REFLUX DISEASE
  8. FLUVOXAMINE MALEATE [Concomitant]
     Indication: DEPRESSION
  9. LORAZEPAM [Concomitant]
  10. DOCUSATE SODIUM [Concomitant]
     Indication: IRRITABLE BOWEL SYNDROME
  11. SENOKOT [Concomitant]
     Indication: IRRITABLE BOWEL SYNDROME
  12. FLOVENT [Concomitant]
  13. ORACORT [Concomitant]
     Indication: ORAL PAIN
  14. NILSTAT [Concomitant]
     Indication: ORAL FUNGAL INFECTION
  15. HYDROCORTISONE CREAM [Concomitant]
  16. FLAMAZINE [Concomitant]

REACTIONS (3)
  - DRUG INEFFECTIVE [None]
  - PRODUCT QUALITY ISSUE [None]
  - WRONG TECHNIQUE IN DRUG USAGE PROCESS [None]
